FAERS Safety Report 4872657-2 (Version None)
Quarter: 2006Q1

REPORT INFORMATION
  Report Type: 
  Country: None (occurrence: None)
  Receive Date: 20060103
  Receipt Date: 20051214
  Transmission Date: 20060701
  Serious: Yes (Hospitalization, Other)
  Sender: FDA-Public Use
  Company Number: DEU-2005-0001873

PATIENT
  Age: 37 Year
  Sex: Female

DRUGS (4)
  1. MORPHINE SULFATE INJ [Suspect]
     Indication: PAIN
     Dosage: 0.04, SEE TEXT, EPIDURAL
     Route: 008
  2. BUPIVACAINE [Suspect]
     Indication: PAIN
     Dosage: SEE TEXT, EPIDURAL
     Route: 008
  3. LIDOCAINE [Suspect]
     Indication: PAIN
     Dosage: SEE TEXT, EPIDURAL
     Route: 008
  4. EPINEPHRINE [Concomitant]
     Indication: PAIN
     Dosage: SEE TEXT, EPIDURAL
     Route: 008

REACTIONS (5)
  - INFUSION SITE ABSCESS [None]
  - INFUSION SITE ERYTHEMA [None]
  - INJECTION SITE SWELLING [None]
  - OSTEOMYELITIS [None]
  - POSTOPERATIVE INFECTION [None]
